FAERS Safety Report 11837823 (Version 9)
Quarter: 2017Q2

REPORT INFORMATION
  Report Type: Spontaneous
  Country: US (occurrence: US)
  Receive Date: 20151215
  Receipt Date: 20170419
  Transmission Date: 20170829
  Serious: Yes (Other)
  Sender: FDA-Public Use
  Company Number: US-PFIZER INC-2015412573

PATIENT
  Age: 73 Year
  Sex: Female
  Weight: 50.79 kg

DRUGS (4)
  1. SUTENT [Suspect]
     Active Substance: SUNITINIB MALATE
     Indication: GASTROINTESTINAL STROMAL TUMOUR
     Dosage: 37.5 MG, CYCLIC (12.5 MG X3 CAPSULES DAILY, D1-D28 Q28 D)
     Route: 048
     Dates: start: 20131119
  2. SUTENT [Suspect]
     Active Substance: SUNITINIB MALATE
     Dosage: 37.5 MG, CYCLIC (12.5 MG X3 CAPSULES DAILY, D1-D28 Q28 D)
     Route: 048
     Dates: start: 20131119
  3. SUTENT [Suspect]
     Active Substance: SUNITINIB MALATE
     Dosage: 37.5 MG, CYCLIC (12.5 MG X3 CAPSULES DAILY, D1-D28 Q28 D)
     Route: 048
     Dates: start: 20131119, end: 201704
  4. SUTENT [Suspect]
     Active Substance: SUNITINIB MALATE
     Dosage: 37.5 MG, CYCLIC (12.5 MG X3 CAPSULES DAILY, D1-D28 Q28 D)
     Route: 048

REACTIONS (10)
  - Liver disorder [Unknown]
  - Pruritus [Unknown]
  - Hyperthyroidism [Unknown]
  - Fatigue [Not Recovered/Not Resolved]
  - Rash erythematous [Unknown]
  - Neoplasm progression [Unknown]
  - Rash [Unknown]
  - Weight decreased [Unknown]
  - Diarrhoea [Not Recovered/Not Resolved]
  - Nausea [Not Recovered/Not Resolved]

NARRATIVE: CASE EVENT DATE: 20151124
